FAERS Safety Report 4547706-1 (Version None)
Quarter: 2005Q1

REPORT INFORMATION
  Report Type: 
  Country: None (occurrence: None)
  Receive Date: 20050107
  Receipt Date: 20041229
  Transmission Date: 20050727
  Serious: Yes (Life-Threatening)
  Sender: FDA-Public Use
  Company Number: FR-AMGEN-UK105684

PATIENT
  Sex: Female

DRUGS (3)
  1. NEULASTA [Suspect]
     Indication: CHEMOTHERAPY
     Route: 058
     Dates: start: 20040828, end: 20040828
  2. EPIRUBICIN [Suspect]
     Route: 042
     Dates: start: 20040827, end: 20040827
  3. ENDOXAN [Suspect]
     Route: 042
     Dates: start: 20040827, end: 20040827

REACTIONS (3)
  - CARDIAC FAILURE [None]
  - DRUG TOXICITY [None]
  - EJECTION FRACTION DECREASED [None]
